FAERS Safety Report 17589199 (Version 1)
Quarter: 2020Q1

REPORT INFORMATION
  Report Type: Report from Study
  Country: US (occurrence: US)
  Receive Date: 20200327
  Receipt Date: 20200327
  Transmission Date: 20200409
  Serious: Yes (Other)
  Sender: FDA-Public Use
  Company Number: NVSC2020US082119

PATIENT
  Sex: Female

DRUGS (2)
  1. COSENTYX [Suspect]
     Active Substance: SECUKINUMAB
     Dosage: 300 MG, UNKNOWN
     Route: 058
     Dates: start: 20200229, end: 20200229
  2. COSENTYX [Suspect]
     Active Substance: SECUKINUMAB
     Indication: ANKYLOSING SPONDYLITIS
     Dosage: 300 MG, QW FOR LOADING DOSE THEN ONCE Q 4 WEEKS MAINTAINING DOSE
     Route: 058

REACTIONS (5)
  - Candida infection [Unknown]
  - Ear infection [Recovering/Resolving]
  - Malaise [Unknown]
  - Respiratory tract infection [Recovering/Resolving]
  - Influenza [Unknown]
